FAERS Safety Report 23910846 (Version 2)
Quarter: 2024Q3

REPORT INFORMATION
  Report Type: Spontaneous
  Country: US (occurrence: US)
  Receive Date: 20240528
  Receipt Date: 20240809
  Transmission Date: 20241017
  Serious: Yes (Other)
  Sender: AVADEL CNS PHARMA
  Company Number: US-AVADEL CNS PHARMACEUTICALS, LLC-2024AVA00512

PATIENT
  Sex: Male

DRUGS (4)
  1. LUMRYZ [Suspect]
     Active Substance: SODIUM OXYBATE
     Indication: Narcolepsy
     Dosage: 4.5 G, ONCE NIGHTLY AT BEDTIME
     Route: 048
     Dates: start: 20240325, end: 20240424
  2. LUMRYZ [Suspect]
     Active Substance: SODIUM OXYBATE
     Indication: Cataplexy
  3. LUMRYZ [Suspect]
     Active Substance: SODIUM OXYBATE
     Indication: Narcolepsy
     Dosage: 6 G, ONCE NIGHTLY
     Route: 048
     Dates: start: 20240425, end: 2024
  4. LUMRYZ [Suspect]
     Active Substance: SODIUM OXYBATE
     Indication: Cataplexy

REACTIONS (12)
  - Mental impairment [Recovering/Resolving]
  - Initial insomnia [Recovering/Resolving]
  - Feeling abnormal [Recovering/Resolving]
  - Aphasia [Recovering/Resolving]
  - Insomnia [Recovering/Resolving]
  - Muscular weakness [Recovering/Resolving]
  - Somnolence [Not Recovered/Not Resolved]
  - Dizziness [Recovering/Resolving]
  - Vision blurred [Recovering/Resolving]
  - Depressed mood [Recovering/Resolving]
  - Nocturia [Unknown]
  - Drug ineffective [Recovered/Resolved]

NARRATIVE: CASE EVENT DATE: 20240101
